FAERS Safety Report 10263704 (Version 9)
Quarter: 2014Q3

REPORT INFORMATION
  Report Type: Spontaneous
  Country: GB (occurrence: GB)
  Receive Date: 20140626
  Receipt Date: 20140905
  Transmission Date: 20150326
  Serious: Yes (Death, Life-Threatening, Hospitalization, Other)
  Sender: FDA-Public Use
  Company Number: GB-AMGEN INC.-UK365203

PATIENT
  Age: 76 Year
  Sex: Female
  Weight: 65.57 kg

DRUGS (25)
  1. CYCLOPHOSPHAMIDE. [Suspect]
     Active Substance: CYCLOPHOSPHAMIDE
     Indication: DIFFUSE LARGE B-CELL LYMPHOMA
     Dosage: 1300 MG, UNK
     Route: 042
     Dates: start: 20090826
  2. SIMVASTATIN. [Concomitant]
     Active Substance: SIMVASTATIN
     Dosage: 20 MG, 1 IN 1 D
     Route: 048
  3. VANCOMYCIN [Concomitant]
     Active Substance: VANCOMYCIN
     Dosage: 1500 MG (750 MG, 2 IN 1 D)
     Route: 042
  4. GEMCITABINE [Suspect]
     Active Substance: GEMCITABINE\GEMCITABINE HYDROCHLORIDE
     Indication: DIFFUSE LARGE B-CELL LYMPHOMA
     Dosage: 1285 MG, ON DAY 1 (FULL DOSE) 969 MG ON DAY 8 (NO FULL DOSE)
     Route: 042
     Dates: start: 20090826
  5. FRAGMIN [Concomitant]
     Active Substance: DALTEPARIN SODIUM
     Dosage: 6250 MCG, 1 IN 1 D
     Route: 058
  6. ADCAL D3 [Concomitant]
     Active Substance: CALCIUM CARBONATE\CHOLECALCIFEROL
     Dosage: UNK UNK, 1 IN 1 D
     Route: 048
  7. CARBAZOCHROME [Concomitant]
     Active Substance: CARBAZOCHROME
     Dosage: 75 MUG, (1 IN 3 D) (1 IN 1 D)
     Route: 048
  8. FENTANYL. [Concomitant]
     Active Substance: FENTANYL
     Dosage: 200 MG, 2 IN 1 D
  9. FUROSEMIDE. [Concomitant]
     Active Substance: FUROSEMIDE
     Dosage: 40 MG, 2 IN 1 D
     Route: 048
  10. NEULASTA [Suspect]
     Active Substance: PEGFILGRASTIM
     Indication: DIFFUSE LARGE B-CELL LYMPHOMA
     Dosage: 6 MG, DAY 9
     Route: 058
     Dates: start: 20090903
  11. RITUXIMAB [Suspect]
     Active Substance: RITUXIMAB
     Indication: DIFFUSE LARGE B-CELL LYMPHOMA
     Dosage: 645 UNK, UNK
     Route: 042
     Dates: start: 20090826
  12. ADCAL D3 [Concomitant]
     Active Substance: CALCIUM CARBONATE\CHOLECALCIFEROL
     Dosage: 300 MG, (1 IN 1 D)
     Route: 048
  13. ATENOLOL. [Concomitant]
     Active Substance: ATENOLOL
     Indication: ATRIAL FIBRILLATION
     Dosage: 50 MG, 1 IN 1 D
     Route: 048
  14. OMEPRAZOLE. [Concomitant]
     Active Substance: OMEPRAZOLE
     Dosage: 20 MG, 1 IN 1 D
     Route: 048
  15. ACICLOVIR [Concomitant]
     Active Substance: ACYCLOVIR
     Dosage: 200 MG, 3 IN 1 D
     Route: 048
  16. FENTANYL. [Concomitant]
     Active Substance: FENTANYL
     Dosage: 75 MCG, 1 IN 3 D
     Route: 061
  17. FRAGMIN [Concomitant]
     Active Substance: DALTEPARIN SODIUM
     Dosage: 20 UNK, UNK
     Dates: start: 20090907
  18. ALLOPURINOL. [Concomitant]
     Active Substance: ALLOPURINOL
     Dosage: 300 MG, 1 IN 1 D
     Route: 048
  19. FUROSEMIDE. [Concomitant]
     Active Substance: FUROSEMIDE
     Dosage: 20 MG, 2 IN 1 D
     Route: 042
     Dates: start: 20090907, end: 20090907
  20. ITRACONAZOLE. [Concomitant]
     Active Substance: ITRACONAZOLE
     Dosage: 400 MG (200 MG, 2 IN 1 D)
     Route: 048
  21. VINCRISTINE [Suspect]
     Active Substance: VINCRISTINE
     Indication: DIFFUSE LARGE B-CELL LYMPHOMA
     Dosage: 1285 MG ON DAY 1 (FULL DOSE) , 996MG ON DAY 8
     Route: 042
     Dates: start: 20090826
  22. FLUCONAZOLE. [Concomitant]
     Active Substance: FLUCONAZOLE
     Dosage: 200 MG, BID
  23. FUROSEMIDE. [Concomitant]
     Active Substance: FUROSEMIDE
     Indication: PLEURAL EFFUSION
     Dosage: 80 MG (40 MG, 2 IN 1 D)
     Route: 048
     Dates: start: 20090907, end: 20090907
  24. FUROSEMIDE. [Concomitant]
     Active Substance: FUROSEMIDE
     Dosage: 200 MG, 2 IN 1 D
  25. SANDO K                            /00031402/ [Concomitant]
     Dosage: UNK, UNK, 1 IN 1 D
     Route: 048

REACTIONS (5)
  - Death [Fatal]
  - Leukopenia [Not Recovered/Not Resolved]
  - Neutropenia [Not Recovered/Not Resolved]
  - Pleural effusion [Not Recovered/Not Resolved]
  - Atrial fibrillation [Not Recovered/Not Resolved]

NARRATIVE: CASE EVENT DATE: 20090901
